FAERS Safety Report 20644967 (Version 1)
Quarter: 2022Q1

REPORT INFORMATION
  Report Type: Report from Study
  Country: US (occurrence: US)
  Receive Date: 20220328
  Receipt Date: 20220328
  Transmission Date: 20220423
  Serious: Yes (Other)
  Sender: FDA-Public Use
  Company Number: US-ABBVIE-22K-163-4330660-00

PATIENT
  Age: 66 Year
  Sex: Male

DRUGS (1)
  1. IMBRUVICA [Suspect]
     Active Substance: IBRUTINIB
     Indication: Chronic lymphocytic leukaemia
     Route: 048
     Dates: start: 201804

REACTIONS (5)
  - Prostate cancer [Unknown]
  - Gastric disorder [Unknown]
  - White blood cell count abnormal [Unknown]
  - Frequent bowel movements [Unknown]
  - Groin infection [Unknown]

NARRATIVE: CASE EVENT DATE: 20220101
